FAERS Safety Report 16940757 (Version 1)
Quarter: 2019Q4

REPORT INFORMATION
  Report Type: Spontaneous
  Country: US (occurrence: US)
  Receive Date: 20191021
  Receipt Date: 20191021
  Transmission Date: 20200122
  Serious: Yes (Other)
  Sender: FDA-Public Use
  Company Number: US-PFIZER INC-2019452229

PATIENT
  Age: 66 Year
  Sex: Male

DRUGS (6)
  1. VIAGRA [Suspect]
     Active Substance: SILDENAFIL CITRATE
     Indication: ERECTILE DYSFUNCTION
     Dosage: 100 MG, ONCE A WEEK
     Dates: start: 20020701, end: 20030409
  2. CIALIS [Suspect]
     Active Substance: TADALAFIL
     Dosage: 20 MG, ONCE A WEEK
     Dates: start: 20070207, end: 20070407
  3. CIALIS [Suspect]
     Active Substance: TADALAFIL
     Dosage: 20 MG, ONCE A WEEK
     Dates: start: 20071211, end: 20110321
  4. CIALIS [Suspect]
     Active Substance: TADALAFIL
     Dosage: 20 MG, ONCE A WEEK
     Dates: start: 20111112, end: 20120315
  5. CIALIS [Suspect]
     Active Substance: TADALAFIL
     Indication: ERECTILE DYSFUNCTION
     Dosage: 20 MG, ONCE A WEEK
     Dates: start: 20060208, end: 20061107
  6. CIALIS [Suspect]
     Active Substance: TADALAFIL
     Dosage: 20 MG, ONCE A WEEK
     Dates: start: 20070710, end: 20071013

REACTIONS (1)
  - Malignant melanoma [Unknown]

NARRATIVE: CASE EVENT DATE: 20070627
